APPROVED DRUG PRODUCT: DRONABINOL
Active Ingredient: DRONABINOL
Strength: 5MG
Dosage Form/Route: CAPSULE;ORAL
Application: A201463 | Product #002
Applicant: LANNETT CO INC
Approved: May 18, 2018 | RLD: No | RS: No | Type: DISCN